FAERS Safety Report 7234170-7 (Version None)
Quarter: 2011Q1

REPORT INFORMATION
  Report Type: 
  Country: None (occurrence: None)
  Receive Date: 20110119
  Receipt Date: 20110114
  Transmission Date: 20110831
  Serious: No
  Sender: FDA-Public Use
  Company Number: US-PFIZER INC-2011010197

PATIENT
  Sex: Male
  Weight: 81.633 kg

DRUGS (3)
  1. OMEPRAZOLE [Concomitant]
     Indication: GASTROOESOPHAGEAL REFLUX DISEASE
     Dosage: UNK
  2. VIAGRA [Suspect]
     Indication: ERECTILE DYSFUNCTION
     Dosage: 100 MG, AS NEEDED
     Route: 048
     Dates: end: 20100601
  3. FLUOXETINE [Concomitant]
     Indication: DISTURBANCE IN ATTENTION
     Dosage: UNK

REACTIONS (1)
  - DRUG INEFFECTIVE [None]
